FAERS Safety Report 7375479-6 (Version None)
Quarter: 2011Q1

REPORT INFORMATION
  Report Type: 
  Country: None (occurrence: None)
  Receive Date: 20110325
  Receipt Date: 20110318
  Transmission Date: 20110831
  Serious: Yes (Other)
  Sender: FDA-Public Use
  Company Number: JP-PFIZER INC-2011062209

PATIENT
  Age: 45 Year
  Sex: Male

DRUGS (4)
  1. PEGVISOMANT [Suspect]
     Indication: ACROMEGALY
     Dosage: 30 MG, 1X/DAY
     Route: 058
     Dates: start: 20080410, end: 20081205
  2. PEGVISOMANT [Suspect]
     Dosage: 40 MG, 1X/DAY
     Route: 058
     Dates: start: 20090604
  3. PEGVISOMANT [Suspect]
     Dosage: 30 MG, 1X/DAY
     Route: 058
     Dates: start: 20090409
  4. SANDOSTATIN [Concomitant]
     Indication: ACROMEGALY
     Dosage: UNK
     Route: 030
     Dates: end: 20081106

REACTIONS (2)
  - NEOPLASM RECURRENCE [None]
  - PITUITARY TUMOUR [None]
